FAERS Safety Report 15481483 (Version 1)
Quarter: 2018Q4

REPORT INFORMATION
  Report Type: Spontaneous
  Country: US (occurrence: US)
  Receive Date: 20181010
  Receipt Date: 20181010
  Transmission Date: 20190205
  Serious: No
  Sender: FDA-Public Use
  Company Number: US-BIO PRODUCTS LABORATORY LTD-2055880

PATIENT
  Age: 46 Year
  Sex: Female
  Weight: 40.8 kg

DRUGS (4)
  1. TYLENOL [Concomitant]
     Active Substance: ACETAMINOPHEN
  2. BENADRYL [Concomitant]
     Active Substance: DIPHENHYDRAMINE HYDROCHLORIDE
  3. GAMMAPLEX [Suspect]
     Active Substance: HUMAN IMMUNOGLOBULIN G
     Route: 042
  4. MOTRIN [Concomitant]
     Active Substance: IBUPROFEN

REACTIONS (6)
  - Influenza like illness [Unknown]
  - Vomiting [Unknown]
  - Malaise [Unknown]
  - Neck pain [Unknown]
  - Back pain [Unknown]
  - Nausea [Unknown]
